FAERS Safety Report 6050670-X (Version None)
Quarter: 2009Q1

REPORT INFORMATION
  Report Type: 
  Country: None (occurrence: None)
  Receive Date: 20090126
  Receipt Date: 20090119
  Transmission Date: 20090719
  Serious: Yes (Other)
  Sender: FDA-Public Use
  Company Number: US-ELI_LILLY_AND_COMPANY-US200901003001

PATIENT
  Sex: Male

DRUGS (6)
  1. HUMULIN N [Suspect]
  2. HUMULIN N [Suspect]
  3. HUMULIN R [Suspect]
  4. SYNTHROID [Concomitant]
     Indication: THYROID DISORDER
  5. ALPHAGAN [Concomitant]
  6. PREDNISONE [Concomitant]
     Indication: EYE DISORDER

REACTIONS (15)
  - ABNORMAL SENSATION IN EYE [None]
  - BLINDNESS [None]
  - BLOOD GLUCOSE DECREASED [None]
  - BLOOD GLUCOSE INCREASED [None]
  - DRUG INEFFECTIVE [None]
  - DRUG INTERACTION [None]
  - EYE DISORDER [None]
  - GALLBLADDER DISORDER [None]
  - GLAUCOMA [None]
  - HAEMOCHROMATOSIS [None]
  - INTRAOCULAR LENS IMPLANT [None]
  - RETINAL INJURY [None]
  - RETINAL VEIN OCCLUSION [None]
  - THYROID DISORDER [None]
  - VISION BLURRED [None]
